FAERS Safety Report 21914642 (Version 2)
Quarter: 2024Q1

REPORT INFORMATION
  Report Type: Report from Study
  Country: US (occurrence: US)
  Receive Date: 20230126
  Receipt Date: 20240130
  Transmission Date: 20240410
  Serious: Yes (Hospitalization, Other)
  Sender: FDA-Public Use
  Company Number: US-BAUSCH-BL-2023-001150

PATIENT
  Age: 69 Year
  Sex: Female
  Weight: 72.091 kg

DRUGS (15)
  1. XIFAXAN [Suspect]
     Active Substance: RIFAXIMIN
     Indication: Hepatic encephalopathy
     Route: 048
     Dates: end: 2022
  2. XIFAXAN [Suspect]
     Active Substance: RIFAXIMIN
     Route: 048
  3. ATORVASTATIN [Concomitant]
     Active Substance: ATORVASTATIN
     Indication: Product used for unknown indication
     Route: 048
  4. FOLIC ACID [Concomitant]
     Active Substance: FOLIC ACID
     Indication: Product used for unknown indication
     Dosage: 3 REFILLS
     Route: 048
  5. FUROSEMIDE [Concomitant]
     Active Substance: FUROSEMIDE
     Indication: Hypervolaemia
     Route: 048
  6. FUROSEMIDE [Concomitant]
     Active Substance: FUROSEMIDE
     Indication: Ascites
  7. METFORMIN [Concomitant]
     Active Substance: METFORMIN HYDROCHLORIDE
     Indication: Diabetes mellitus
     Route: 048
  8. PANTOPRAZOLE [Concomitant]
     Active Substance: PANTOPRAZOLE
     Indication: Product used for unknown indication
     Dosage: BEFORE BREAKFAST
     Route: 048
  9. SPIRONOLACTONE [Concomitant]
     Active Substance: SPIRONOLACTONE
     Indication: Ascites
     Route: 048
  10. SPIRONOLACTONE [Concomitant]
     Active Substance: SPIRONOLACTONE
     Indication: Hypervolaemia
  11. THIAMINE [Concomitant]
     Active Substance: THIAMINE
     Indication: Product used for unknown indication
     Route: 048
  12. ZINC SULFATE [Concomitant]
     Active Substance: ZINC SULFATE
     Indication: Hepatic encephalopathy
     Dosage: DOSED AS ZINC SULFATE SALT
     Route: 048
  13. LASIX [Concomitant]
     Active Substance: FUROSEMIDE
     Indication: Ascites
     Dosage: LASIX
  14. LACTULOSE [Concomitant]
     Active Substance: LACTULOSE
     Indication: Hepatic encephalopathy
     Dosage: 10GM/15 ML
     Route: 048
  15. NEXIUM [Concomitant]
     Active Substance: ESOMEPRAZOLE MAGNESIUM
     Indication: Product used for unknown indication
     Dosage: CAPSULE DELAYED RELEASE
     Route: 048

REACTIONS (17)
  - Hepatic encephalopathy [Unknown]
  - Condition aggravated [Unknown]
  - Biliary dilatation [Unknown]
  - Cholelithiasis [Unknown]
  - Asterixis [Unknown]
  - Urinary tract infection [Unknown]
  - Confusional state [Unknown]
  - Fatigue [Unknown]
  - Oedema peripheral [Unknown]
  - Arthralgia [Unknown]
  - Sleep disorder [Unknown]
  - Palmar erythema [Unknown]
  - Decreased appetite [Unknown]
  - Taste disorder [Unknown]
  - Peripheral swelling [Unknown]
  - Product use issue [Unknown]
  - Inability to afford medication [Unknown]

NARRATIVE: CASE EVENT DATE: 20220101
